FAERS Safety Report 11077265 (Version 2)
Quarter: 2015Q2

REPORT INFORMATION
  Report Type: Spontaneous
  Country: US (occurrence: US)
  Receive Date: 20150429
  Receipt Date: 20150520
  Transmission Date: 20150821
  Serious: No
  Sender: FDA-Public Use
  Company Number: US-ELI_LILLY_AND_COMPANY-US201504000695

PATIENT
  Age: 84 Year
  Sex: Female

DRUGS (8)
  1. XARELTO [Concomitant]
     Active Substance: RIVAROXABAN
     Indication: CARDIAC VALVE DISEASE
  2. XANAX [Concomitant]
     Active Substance: ALPRAZOLAM
  3. TYLENOL [Concomitant]
     Active Substance: ACETAMINOPHEN
  4. HUMALOG [Suspect]
     Active Substance: INSULIN LISPRO
     Indication: TYPE 1 DIABETES MELLITUS
     Dosage: 4 U, QID
     Route: 065
     Dates: start: 2014
  5. HUMALOG [Suspect]
     Active Substance: INSULIN LISPRO
     Dosage: 4 U, QID
     Route: 065
     Dates: start: 2014
  6. HUMALOG [Suspect]
     Active Substance: INSULIN LISPRO
     Dosage: 5 U, QID
     Route: 058
  7. XARELTO [Concomitant]
     Active Substance: RIVAROXABAN
     Indication: CARDIAC DISORDER
  8. LEVEMIR [Concomitant]
     Active Substance: INSULIN DETEMIR

REACTIONS (5)
  - Blood glucose decreased [Recovered/Resolved]
  - Medication error [Unknown]
  - Blood glucose fluctuation [Unknown]
  - Underdose [Unknown]
  - Monoplegia [Unknown]

NARRATIVE: CASE EVENT DATE: 20150501
